FAERS Safety Report 6642839-8 (Version None)
Quarter: 2010Q1

REPORT INFORMATION
  Report Type: 
  Country: None (occurrence: None)
  Receive Date: 20100319
  Receipt Date: 20100310
  Transmission Date: 20100710
  Serious: Yes (Hospitalization, Other)
  Sender: FDA-Public Use
  Company Number: JP-WYE-H14041310

PATIENT
  Age: 27 Year
  Sex: Female

DRUGS (5)
  1. PREMARIN [Suspect]
     Indication: HYPOTHALAMO-PITUITARY DISORDER
     Dosage: NOT SPECIFIED
     Route: 048
  2. WARFARIN SODIUM [Concomitant]
     Indication: ANTICOAGULANT THERAPY
     Dosage: NOT SPECIFIED
     Route: 065
  3. DIGOXIN [Concomitant]
     Dosage: NOT SPECIFIED
     Route: 065
  4. CORTISOL [Concomitant]
     Indication: HYPOTHALAMO-PITUITARY DISORDER
     Dosage: NOT SPECIFIED
     Route: 048
  5. LEVOTHYROXINE SODIUM [Concomitant]
     Indication: HYPOTHALAMO-PITUITARY DISORDER
     Dosage: NOT SPECIFIED
     Route: 048

REACTIONS (1)
  - CARDIAC VALVE REPLACEMENT COMPLICATION [None]
